FAERS Safety Report 8231089-X (Version None)
Quarter: 2012Q1

REPORT INFORMATION
  Report Type: 
  Country: None (occurrence: None)
  Receive Date: 20120322
  Receipt Date: 20120322
  Transmission Date: 20120608
  Serious: Yes (Other)
  Sender: FDA-Public Use
  Company Number: None

PATIENT
  Age: 64 Year
  Sex: Female
  Weight: 51.709 kg

DRUGS (1)
  1. SIMVASTATIN [Suspect]
     Indication: BLOOD CHOLESTEROL INCREASED
     Dosage: 20.0 MG
     Route: 048
     Dates: start: 20090501, end: 20120210

REACTIONS (7)
  - GAIT DISTURBANCE [None]
  - TINNITUS [None]
  - DIZZINESS [None]
  - ASTHENIA [None]
  - DYSPHAGIA [None]
  - MYALGIA [None]
  - VERTIGO [None]
